FAERS Safety Report 26062578 (Version 1)
Quarter: 2025Q4

REPORT INFORMATION
  Report Type: Spontaneous
  Country: US (occurrence: None)
  Receive Date: 20251118
  Receipt Date: 20251118
  Transmission Date: 20260118
  Serious: No
  Sender: FDA-CTU
  Company Number: None

PATIENT
  Sex: Female

DRUGS (1)
  1. ICATIBANT ACETATE [Suspect]
     Active Substance: ICATIBANT ACETATE
     Indication: Immune system disorder
     Dosage: FREQUENCY : AS NEEDED;?30MG/3ML
     Route: 058
     Dates: start: 20230620

REACTIONS (3)
  - Gastrooesophageal reflux disease [None]
  - Musculoskeletal disorder [None]
  - Abdominal symptom [None]
